FAERS Safety Report 7248200-X (Version None)
Quarter: 2011Q1

REPORT INFORMATION
  Report Type: 
  Country: None (occurrence: None)
  Receive Date: 20110127
  Receipt Date: 20110118
  Transmission Date: 20110831
  Serious: Yes (Other)
  Sender: FDA-Public Use
  Company Number: US-BAYER-2011-006186

PATIENT
  Sex: Female

DRUGS (3)
  1. YASMIN [Suspect]
     Indication: PRODUCT USED FOR UNKNOWN INDICATION
     Dosage: UNK
     Dates: start: 19950101, end: 20060101
  2. OCELLA [Suspect]
     Indication: PRODUCT USED FOR UNKNOWN INDICATION
     Dosage: UNK
     Dates: start: 19950101, end: 20060101
  3. YAZ [Suspect]
     Indication: PRODUCT USED FOR UNKNOWN INDICATION
     Dosage: UNK
     Dates: start: 19950101, end: 20060101

REACTIONS (8)
  - EMOTIONAL DISTRESS [None]
  - PULMONARY EMBOLISM [None]
  - CARDIAC VALVE DISEASE [None]
  - AORTIC VALVE INCOMPETENCE [None]
  - INJURY [None]
  - PAIN [None]
  - ANXIETY [None]
  - MENTAL DISORDER [None]
